FAERS Safety Report 4877193-5 (Version None)
Quarter: 2005Q4

REPORT INFORMATION
  Report Type: 
  Country: None (occurrence: None)
  Receive Date: 20051206
  Receipt Date: 20051006
  Transmission Date: 20060501
  Serious: Yes (Other)
  Sender: FDA-Public Use
  Company Number: USA0510109685

PATIENT
  Age: 64 Year
  Sex: Male
  Weight: 64.4108 kg

DRUGS (5)
  1. CYMBALTA [Suspect]
     Indication: NEURALGIA
     Dosage: 60 MG DAY
     Dates: start: 20050901
  2. ATENOLOL [Concomitant]
  3. PREVACID [Concomitant]
  4. ZOCOR [Concomitant]
  5. NSAIDS [Concomitant]

REACTIONS (1)
  - HYPERTENSIVE CRISIS [None]
